FAERS Safety Report 21550020 (Version 2)
Quarter: 2022Q4

REPORT INFORMATION
  Report Type: Spontaneous
  Country: EE (occurrence: EE)
  Receive Date: 20221103
  Receipt Date: 20221107
  Transmission Date: 20230113
  Serious: Yes (Death)
  Sender: FDA-Public Use
  Company Number: EE-TEVA-2022-EE-2821100

PATIENT
  Age: 66 Year
  Sex: Male
  Weight: 107 kg

DRUGS (2)
  1. TRISENOX [Suspect]
     Active Substance: ARSENIC TRIOXIDE
     Indication: Product used for unknown indication
     Dosage: 15 MILLIGRAM DAILY; 0,15MG/KG
     Route: 065
     Dates: start: 20221018
  2. TRETINOIN [Suspect]
     Active Substance: TRETINOIN
     Indication: Product used for unknown indication
     Route: 065

REACTIONS (2)
  - Haemorrhage [Fatal]
  - Differentiation syndrome [Fatal]

NARRATIVE: CASE EVENT DATE: 20221001
